FAERS Safety Report 10304711 (Version 1)
Quarter: 2014Q3

REPORT INFORMATION
  Report Type: Spontaneous
  Country: CH (occurrence: None)
  Receive Date: 20140710
  Receipt Date: 20140710
  Transmission Date: 20150326
  Serious: Yes (Other)
  Sender: FDA-Public Use
  Company Number: 20140393

PATIENT
  Age: 38 Year
  Sex: Male
  Weight: 35 kg

DRUGS (8)
  1. HYDROSOL POLYVITAMINE (VITAMIN A, B1, B2, B3,B5,B6,C,D2 AND E) [Concomitant]
  2. ZINC [Concomitant]
     Active Substance: ZINC\ZINC CHLORIDE
  3. SELENIUM [Concomitant]
     Active Substance: SELENIUM
  4. VITAMIN C [Concomitant]
     Active Substance: ASCORBIC ACID
  5. DIPROSONE (BETAMETHASONE SODIUM PHOSPHATE) [Concomitant]
  6. FORTIMEL (PROTEINS) [Concomitant]
  7. UVEDOSE (CHOLECALCIFEROL) [Concomitant]
  8. FERINJECT [Suspect]
     Active Substance: FERRIC CARBOXYMALTOSE
     Indication: IRON DEFICIENCY ANAEMIA
     Dosage: MORE THAN 10 MONTHS
     Route: 041
     Dates: start: 20121001, end: 20130701

REACTIONS (4)
  - Overdose [None]
  - Iron overload [None]
  - Medication error [None]
  - Serum ferritin increased [None]

NARRATIVE: CASE EVENT DATE: 2012
